FAERS Safety Report 7999431-2 (Version None)
Quarter: 2011Q4

REPORT INFORMATION
  Report Type: 
  Country: None (occurrence: None)
  Receive Date: 20111221
  Receipt Date: 20111214
  Transmission Date: 20120403
  Serious: Yes (Other)
  Sender: FDA-Public Use
  Company Number: US-PFIZER INC-2011260113

PATIENT
  Sex: Male
  Weight: 68.027 kg

DRUGS (4)
  1. SYNTHROID [Concomitant]
     Indication: BLOOD THYROID STIMULATING HORMONE INCREASED
     Dosage: UNK
  2. GEODON [Suspect]
     Dosage: 20 MG, 2X/DAY
     Route: 048
     Dates: start: 20110101, end: 20111201
  3. GEODON [Suspect]
     Dosage: UNK
     Route: 048
     Dates: start: 20101201
  4. GEODON [Suspect]
     Indication: BIPOLAR I DISORDER
     Dosage: 80 MG, 2X/DAY
     Route: 048
     Dates: start: 20081201, end: 20090801

REACTIONS (5)
  - ACUTE PSYCHOSIS [None]
  - EXTRAPYRAMIDAL DISORDER [None]
  - FEELING ABNORMAL [None]
  - DYSTONIA [None]
  - CIRCUMSTANCE OR INFORMATION CAPABLE OF LEADING TO MEDICATION ERROR [None]
